FAERS Safety Report 11118702 (Version 1)
Quarter: 2015Q2

REPORT INFORMATION
  Report Type: Report from Study
  Country: CA (occurrence: CA)
  Receive Date: 20150518
  Receipt Date: 20150518
  Transmission Date: 20150821
  Serious: Yes (Other)
  Sender: FDA-Public Use
  Company Number: CA-JNJFOC-20150510660

PATIENT
  Age: 20 Year
  Sex: Female
  Weight: 105.4 kg

DRUGS (5)
  1. TYLENOL NO.3 [Concomitant]
     Route: 065
  2. ADVIL [Concomitant]
     Active Substance: IBUPROFEN
     Indication: SINUS DISORDER
     Route: 065
  3. REMICADE [Suspect]
     Active Substance: INFLIXIMAB
     Indication: COLITIS ULCERATIVE
     Dosage: 17 TH INFUSION
     Route: 042
     Dates: start: 20150319
  4. ADVIL [Concomitant]
     Active Substance: IBUPROFEN
     Indication: NASOPHARYNGITIS
     Route: 065
  5. REMICADE [Suspect]
     Active Substance: INFLIXIMAB
     Indication: COLITIS ULCERATIVE
     Route: 042
     Dates: start: 20130215

REACTIONS (2)
  - Impaired work ability [Recovering/Resolving]
  - Tendonitis [Recovering/Resolving]

NARRATIVE: CASE EVENT DATE: 201503
